FAERS Safety Report 5861973-3 (Version None)
Quarter: 2008Q3

REPORT INFORMATION
  Report Type: 
  Country: None (occurrence: None)
  Receive Date: 20080827
  Receipt Date: 20080725
  Transmission Date: 20090109
  Serious: No
  Sender: FDA-Public Use
  Company Number: US-ABBOTT-08P-163-0465684-00

PATIENT
  Sex: Female
  Weight: 70.824 kg

DRUGS (8)
  1. COATED PDS [Suspect]
     Indication: BLOOD CHOLESTEROL INCREASED
     Route: 048
     Dates: start: 20080501, end: 20080501
  2. COATED PDS [Suspect]
     Indication: BLOOD TRIGLYCERIDES INCREASED
     Route: 048
     Dates: start: 20080501, end: 20080501
  3. LISINOPRIL [Concomitant]
     Indication: BLOOD PRESSURE
     Route: 048
     Dates: start: 19980101
  4. THYROID TAB [Concomitant]
     Indication: THYROID DISORDER
     Route: 048
     Dates: start: 20071101
  5. LEXAPRIL [Concomitant]
     Indication: THYROID DISORDER
     Route: 048
     Dates: start: 20071101
  6. TOCOPHERYL ACETATE [Concomitant]
     Indication: DRUG USE FOR UNKNOWN INDICATION
     Route: 048
  7. THIAMINE HCL [Concomitant]
     Indication: DRUG USE FOR UNKNOWN INDICATION
     Route: 048
  8. BI-EST [Concomitant]
     Indication: OESTROGEN REPLACEMENT THERAPY
     Route: 061
     Dates: start: 20060101

REACTIONS (2)
  - FLUSHING [None]
  - SKIN BURNING SENSATION [None]
